FAERS Safety Report 14848017 (Version 5)
Quarter: 2018Q3

REPORT INFORMATION
  Report Type: Spontaneous
  Country: US (occurrence: US)
  Receive Date: 20180504
  Receipt Date: 20180817
  Transmission Date: 20181010
  Serious: No
  Sender: FDA-Public Use
  Company Number: US-009507513-1804USA012476

PATIENT
  Age: 34 Year
  Sex: Female

DRUGS (12)
  1. EMEND [Suspect]
     Active Substance: APREPITANT
     Dosage: UNK
  2. EMEND [Suspect]
     Active Substance: APREPITANT
     Dosage: UNK
  3. EMEND [Suspect]
     Active Substance: APREPITANT
     Dosage: UNK
  4. EMEND [Suspect]
     Active Substance: APREPITANT
     Dosage: UNK
  5. EMEND [Suspect]
     Active Substance: APREPITANT
     Dosage: UNK
  6. EMEND [Suspect]
     Active Substance: APREPITANT
     Indication: BREAST CANCER
     Dosage: 150 MG, UNK
     Route: 042
     Dates: start: 20180425
  7. EMEND [Suspect]
     Active Substance: APREPITANT
     Dosage: UNK
  8. EMEND [Suspect]
     Active Substance: APREPITANT
     Dosage: UNK
  9. VITAMINS (UNSPECIFIED) [Concomitant]
     Active Substance: VITAMINS
  10. EMEND [Suspect]
     Active Substance: APREPITANT
     Dosage: UNK
  11. CYTOXAN [Concomitant]
     Active Substance: CYCLOPHOSPHAMIDE
     Indication: BREAST CANCER
     Dosage: UNK
  12. ADRIAMYCIN [Concomitant]
     Active Substance: DOXORUBICIN HYDROCHLORIDE
     Indication: BREAST CANCER
     Dosage: UNK

REACTIONS (1)
  - Drug hypersensitivity [Recovered/Resolved]

NARRATIVE: CASE EVENT DATE: 20180425
